FAERS Safety Report 12835520 (Version 2)
Quarter: 2016Q4

REPORT INFORMATION
  Report Type: Report from Study
  Country: FR (occurrence: FR)
  Receive Date: 20161011
  Receipt Date: 20161123
  Transmission Date: 20170207
  Serious: Yes (Hospitalization)
  Sender: FDA-Public Use
  Company Number: FR-ROCHE-1822838

PATIENT
  Age: 41 Year
  Sex: Female
  Weight: 58 kg

DRUGS (21)
  1. TRASTUZUMAB [Suspect]
     Active Substance: TRASTUZUMAB
     Indication: BREAST CANCER
     Dosage: LAST DOSE PRIOR TO SAE: 17/AUG/2016?CUMULATIVE DOSE SINCE 1ST ADMINISTRATION: 2040 MG
     Route: 042
     Dates: start: 20160525, end: 20160817
  2. AMOXICILLIN. [Concomitant]
     Active Substance: AMOXICILLIN
     Dosage: FOR APLASIE FEBRILE
     Route: 065
     Dates: start: 20160828, end: 20160904
  3. CARBOPLATINE [Suspect]
     Active Substance: CARBOPLATIN
     Indication: BREAST CANCER
     Dosage: LAST DOSE PRIOR TO SAE: 17/AUG/2016?CUMULATIVE DOSE SINCE 1ST ADMINISTRATION: 3481 MG
     Route: 042
     Dates: start: 20160525, end: 20160817
  4. DOLIPRANE [Concomitant]
     Active Substance: ACETAMINOPHEN
     Indication: ARTHRALGIA
  5. MUCOMYST [Concomitant]
     Active Substance: ACETYLCYSTEINE
     Indication: RHINITIS
     Route: 065
     Dates: start: 20160828, end: 20160904
  6. HEC (HAMAMELIS/PHENAZONE/TANNIC ACID) [Concomitant]
     Indication: EPISTAXIS
     Route: 065
     Dates: start: 20160817
  7. EMEND [Concomitant]
     Active Substance: APREPITANT
     Indication: NAUSEA
     Route: 048
     Dates: start: 20160728, end: 20160729
  8. VOGALENE [Concomitant]
     Active Substance: METOPIMAZINE
     Indication: NAUSEA
     Route: 065
     Dates: start: 20160615, end: 20160707
  9. PERTUZUMAB [Suspect]
     Active Substance: PERTUZUMAB
     Indication: BREAST CANCER
     Dosage: LAST DOSE PRIOR TO SAE: 17/AUG/2016?CUMULATIVE DOSE SINCE 1ST ADMINISTRATION: 2520 MG
     Route: 042
     Dates: start: 20160525, end: 20160817
  10. DOCETAXEL. [Suspect]
     Active Substance: DOCETAXEL
     Indication: BREAST CANCER
     Dosage: LAST DOSE PRIOR TO SAE: 17/AUG/2016?CUMULATIVE DOSE SINCE 1ST ADMINISTRATION: 659 MG
     Route: 042
     Dates: start: 20160525
  11. SOLUPRED (FRANCE) [Concomitant]
     Active Substance: PREDNISOLONE
     Route: 048
     Dates: start: 20160525
  12. BICARBONATE [Concomitant]
     Active Substance: BICARBONATE ION
     Indication: APHTHOUS ULCER
     Route: 065
     Dates: start: 20160525
  13. ULTRA LEVURE [Concomitant]
     Active Substance: SACCHAROMYCES CEREVISIAE
     Indication: DIARRHOEA
  14. ANTIBIO SYNALAR [Concomitant]
     Active Substance: FLUOCINOLONE ACETONIDE\NEOMYCIN SULFATE\POLYMYXIN B SULFATE
     Indication: RHINITIS
     Route: 065
     Dates: start: 20160817
  15. INEXIUM [Concomitant]
     Active Substance: ESOMEPRAZOLE
     Route: 048
     Dates: start: 20160706, end: 20160728
  16. TIORFAN [Concomitant]
     Active Substance: RACECADOTRIL
     Indication: DIARRHOEA
  17. IMODIUM [Concomitant]
     Active Substance: LOPERAMIDE HYDROCHLORIDE
     Indication: DIARRHOEA
     Route: 065
     Dates: start: 20160615, end: 20160706
  18. HUILE GOMENOLEE [Concomitant]
     Indication: EPISTAXIS
     Route: 065
     Dates: start: 20160817
  19. DOLIPRANE [Concomitant]
     Active Substance: ACETAMINOPHEN
     Indication: HEADACHE
     Route: 048
     Dates: end: 20160728
  20. SOLUPRED (FRANCE) [Concomitant]
     Active Substance: PREDNISOLONE
     Indication: NAUSEA
     Route: 048
     Dates: start: 20160816, end: 20160818
  21. CIPROFLOXACIN. [Concomitant]
     Active Substance: CIPROFLOXACIN
     Route: 065
     Dates: start: 20160828, end: 20160904

REACTIONS (1)
  - Febrile bone marrow aplasia [Recovered/Resolved]

NARRATIVE: CASE EVENT DATE: 20160828
